FAERS Safety Report 16790363 (Version 7)
Quarter: 2025Q3

REPORT INFORMATION
  Report Type: Report from Study
  Country: US (occurrence: US)
  Receive Date: 20190910
  Receipt Date: 20250722
  Transmission Date: 20251021
  Serious: Yes (Death, Life-Threatening, Hospitalization, Other)
  Sender: NOVARTIS
  Company Number: PHHY2019US202277

PATIENT
  Age: 62 Year
  Sex: Female
  Weight: 70.1 kg

DRUGS (23)
  1. KYMRIAH [Suspect]
     Active Substance: TISAGENLECLEUCEL
     Indication: Diffuse large B-cell lymphoma
     Route: 042
     Dates: start: 20190821
  2. ZOMAX [Concomitant]
     Active Substance: ZOMEPIRAC SODIUM
     Indication: Prophylaxis
     Dosage: 800 MG, BID
     Route: 065
     Dates: start: 20190826
  3. FLUDARABINE [Concomitant]
     Active Substance: FLUDARABINE PHOSPHATE
     Indication: Chemotherapy
     Route: 042
     Dates: start: 20190816, end: 20190818
  4. CYCLOPHOSPHAMIDE [Concomitant]
     Active Substance: CYCLOPHOSPHAMIDE
     Indication: Chemotherapy
     Dosage: 250 MG/M2, QD
     Route: 042
     Dates: start: 20190816, end: 20190818
  5. METOPROLOL [Concomitant]
     Active Substance: METOPROLOL
     Indication: Acute myocardial infarction
     Dosage: 25 MG, BID
     Route: 048
     Dates: start: 20190818, end: 20190825
  6. LISINOPRIL [Concomitant]
     Active Substance: LISINOPRIL
     Indication: Acute myocardial infarction
     Route: 065
     Dates: start: 20190818, end: 20190825
  7. MEPRON [Concomitant]
     Active Substance: ATOVAQUONE
     Indication: Prophylaxis
     Route: 065
     Dates: start: 20190816, end: 20190823
  8. DILAUDID [Concomitant]
     Active Substance: HYDROMORPHONE HYDROCHLORIDE
     Indication: Product used for unknown indication
     Route: 048
  9. DECADRON [Concomitant]
     Active Substance: DEXAMETHASONE
     Indication: Product used for unknown indication
     Route: 048
     Dates: start: 20190813
  10. DIFLUCAN [Concomitant]
     Active Substance: FLUCONAZOLE
     Indication: Product used for unknown indication
     Dosage: 2 DF, Q24H
     Route: 048
     Dates: start: 20190807
  11. COMPAZINE [Concomitant]
     Active Substance: PROCHLORPERAZINE MALEATE
     Indication: Product used for unknown indication
     Route: 048
     Dates: start: 20190114
  12. ZOFRAN [Concomitant]
     Active Substance: ONDANSETRON HYDROCHLORIDE
     Indication: Product used for unknown indication
     Route: 048
  13. SENNA [Concomitant]
     Active Substance: SENNOSIDES
     Indication: Product used for unknown indication
     Route: 048
  14. LOTREL [Concomitant]
     Active Substance: AMLODIPINE BESYLATE\BENAZEPRIL HYDROCHLORIDE
     Indication: Product used for unknown indication
     Dosage: 1 DF, QD
     Route: 048
     Dates: start: 20190521
  15. POTASSIUM CHLORIDE [Concomitant]
     Active Substance: POTASSIUM CHLORIDE
     Indication: Product used for unknown indication
     Route: 065
  16. FEMARA [Concomitant]
     Active Substance: LETROZOLE
     Indication: Product used for unknown indication
     Dosage: 1 DF, QD
     Route: 048
     Dates: start: 20190625
  17. NARCAN [Concomitant]
     Active Substance: NALOXONE HYDROCHLORIDE
     Indication: Product used for unknown indication
     Route: 048
     Dates: start: 20190710
  18. ZYLOPRIM [Concomitant]
     Active Substance: ALLOPURINOL
     Indication: Product used for unknown indication
     Dosage: 1 DF, QD
     Route: 048
     Dates: start: 20190717
  19. K dur [Concomitant]
     Indication: Product used for unknown indication
     Dosage: 20 MEQ, BID
     Route: 048
  20. CLARITIN [Concomitant]
     Active Substance: LORATADINE
     Indication: Product used for unknown indication
     Dosage: 10 MG, QD
     Route: 048
  21. PERCOCET [Concomitant]
     Active Substance: ACETAMINOPHEN\OXYCODONE HYDROCHLORIDE
     Indication: Pain
     Route: 048
  22. ROXICODONE [Concomitant]
     Active Substance: OXYCODONE HYDROCHLORIDE
     Indication: Pain
     Route: 065
  23. ZOSYN [Concomitant]
     Active Substance: PIPERACILLIN SODIUM\TAZOBACTAM SODIUM
     Indication: Product used for unknown indication
     Route: 065

REACTIONS (34)
  - Shock [Fatal]
  - Spinal cord infarction [Fatal]
  - Splenic infarction [Fatal]
  - Pleural effusion [Fatal]
  - Circulatory collapse [Fatal]
  - Acute myocardial infarction [Fatal]
  - Diffuse large B-cell lymphoma [Fatal]
  - Vertebral artery occlusion [Fatal]
  - Subclavian artery occlusion [Fatal]
  - Aortic thrombosis [Fatal]
  - Haemophagocytic lymphohistiocytosis [Unknown]
  - Cytokine release syndrome [Unknown]
  - Hypotension [Unknown]
  - Haemoptysis [Not Recovered/Not Resolved]
  - Tachycardia [Unknown]
  - Pyrexia [Not Recovered/Not Resolved]
  - Fatigue [Recovering/Resolving]
  - Disseminated intravascular coagulation [Unknown]
  - Acute kidney injury [Unknown]
  - Multiple organ dysfunction syndrome [Unknown]
  - Pulmonary alveolar haemorrhage [Unknown]
  - Metabolic acidosis [Recovered/Resolved]
  - Respiratory failure [Unknown]
  - Systemic inflammatory response syndrome [Unknown]
  - Pulmonary embolism [Unknown]
  - Neurotoxicity [Recovering/Resolving]
  - Hypoaesthesia [Unknown]
  - Pancytopenia [Recovering/Resolving]
  - Mental disorder [Unknown]
  - Neutropenia [Unknown]
  - Sepsis [Recovered/Resolved]
  - Dysgraphia [Recovering/Resolving]
  - Thinking abnormal [Recovering/Resolving]
  - Out of specification test results [Unknown]

NARRATIVE: CASE EVENT DATE: 20190821
